FAERS Safety Report 10221424 (Version 1)
Quarter: 2014Q2

REPORT INFORMATION
  Report Type: Spontaneous
  Country: US (occurrence: US)
  Receive Date: 20140606
  Receipt Date: 20140606
  Transmission Date: 20141212
  Serious: Yes (Other)
  Sender: FDA-Public Use
  Company Number: US-PURDUE-USA-2014-0114578

PATIENT
  Sex: Female

DRUGS (2)
  1. OXYCONTIN (NDA 22-272) [Suspect]
     Indication: BACK DISORDER
     Dosage: UNK
     Route: 048
  2. HYDROCODONE [Suspect]
     Indication: BACK DISORDER
     Dosage: UNK
     Route: 048

REACTIONS (3)
  - Homicide [Unknown]
  - Road traffic accident [Unknown]
  - Impaired driving ability [Unknown]
